FAERS Safety Report 7422850-X (Version None)
Quarter: 2011Q2

REPORT INFORMATION
  Report Type: 
  Country: None (occurrence: None)
  Receive Date: 20110419
  Receipt Date: 20110406
  Transmission Date: 20111010
  Serious: Yes (Other)
  Sender: FDA-Public Use
  Company Number: RO-AMGEN-ROUSP2011019221

PATIENT
  Age: 17 Year
  Sex: Male
  Weight: 63 kg

DRUGS (3)
  1. FOLIC ACID [Concomitant]
     Indication: DRUG TOXICITY PROPHYLAXIS
     Dosage: 5 MG, WEEKLY
     Dates: start: 20110327, end: 20110406
  2. ETANERCEPT [Suspect]
     Indication: JUVENILE ARTHRITIS
     Dosage: 25 MG, 2X/WEEK
     Route: 058
     Dates: start: 20080903, end: 20110406
  3. METHOTREXATE SODIUM [Concomitant]
     Indication: JUVENILE ARTHRITIS
     Dosage: 15 MG, WEEKLY
     Route: 030
     Dates: start: 20090327, end: 20110406

REACTIONS (1)
  - HEPATIC NEOPLASM [None]
